FAERS Safety Report 11777353 (Version 1)
Quarter: 2015Q4

REPORT INFORMATION
  Report Type: Spontaneous
  Country: US (occurrence: US)
  Receive Date: 20151125
  Receipt Date: 20151125
  Transmission Date: 20160304
  Serious: No
  Sender: FDA-Public Use
  Company Number: US-MALLINCKRODT-T201503236

PATIENT
  Sex: Male

DRUGS (2)
  1. GABLOFEN [Suspect]
     Active Substance: BACLOFEN
     Indication: MUSCLE SPASTICITY
     Dosage: 530.1 MCG/DAY
     Route: 037
     Dates: start: 2013, end: 20150608
  2. VALIUM [Concomitant]
     Active Substance: DIAZEPAM

REACTIONS (3)
  - Implant site infection [Not Recovered/Not Resolved]
  - Implant site dehiscence [Not Recovered/Not Resolved]
  - Implant site erosion [Not Recovered/Not Resolved]

NARRATIVE: CASE EVENT DATE: 2014
